FAERS Safety Report 13130346 (Version 3)
Quarter: 2017Q3

REPORT INFORMATION
  Report Type: Spontaneous
  Country: US (occurrence: US)
  Receive Date: 20170119
  Receipt Date: 20170710
  Transmission Date: 20171127
  Serious: No
  Sender: FDA-Public Use
  Company Number: US-TEVA-725661USA

PATIENT
  Sex: Female

DRUGS (9)
  1. CELEXA [Concomitant]
     Active Substance: CITALOPRAM HYDROBROMIDE
     Dosage: 10 MILLIGRAM DAILY;
     Route: 048
  2. AZILECT [Suspect]
     Active Substance: RASAGILINE MESYLATE
     Dosage: TAKE 1 TABLET BY MOUTH EVERY MORNING, AVOID TYRAMINE CONTAINING FOODS/ BEVERAGES
     Route: 048
     Dates: start: 20160520
  3. NEUPRO [Concomitant]
     Active Substance: ROTIGOTINE
     Dosage: 4 MG/ 24HOUR PATCH; APPLY 1 PATCH TO THE SKIN EVERY DAY
  4. CALCIUM CARBONATE-VIT D3-MIN600MG CALCIUM-400 UNIT [Concomitant]
     Dosage: TAKE 1-TABLET BY MOUTH EVERY OTHER DAY
     Route: 048
  5. SINEMET [Concomitant]
     Active Substance: CARBIDOPA\LEVODOPA
     Dosage: CARBIDOPA 25 MG/LEVODOPA 100 MG
     Route: 048
  6. NEURONTIN [Concomitant]
     Active Substance: GABAPENTIN
     Dosage: 300 MILLIGRAM DAILY;
     Route: 048
  7. ASPIRIN. [Concomitant]
     Active Substance: ASPIRIN
     Dosage: 81 MILLIGRAM DAILY;
     Route: 048
  8. CHOLECALCIFEROL, VITAMIN D3 [Concomitant]
     Dosage: TAKE 2 TABLETS BY MOUTH EVERY DAY
     Route: 048
  9. TOPROL XL [Concomitant]
     Active Substance: METOPROLOL SUCCINATE
     Dosage: 25 MILLIGRAM DAILY;
     Route: 048

REACTIONS (3)
  - Dyskinesia [Recovered/Resolved]
  - Intentional product misuse [Unknown]
  - Somnolence [Unknown]

NARRATIVE: CASE EVENT DATE: 20161227
